FAERS Safety Report 4962691-6 (Version None)
Quarter: 2006Q2

REPORT INFORMATION
  Report Type: 
  Country: None (occurrence: None)
  Receive Date: 20060404
  Receipt Date: 20051102
  Transmission Date: 20061013
  Serious: Yes (Death, Hospitalization)
  Sender: FDA-Public Use
  Company Number: US-MERCK-0511USA00631

PATIENT
  Age: 65 Year
  Sex: Female
  Weight: 59 kg

DRUGS (7)
  1. VIOXX [Suspect]
     Indication: ARTHRALGIA
     Route: 048
     Dates: start: 20010912, end: 20020822
  2. PREMARIN [Concomitant]
     Route: 065
  3. ZITHROMAX [Concomitant]
     Route: 065
     Dates: start: 20020802
  4. XALATAN [Concomitant]
     Indication: INTRAOCULAR PRESSURE INCREASED
     Route: 065
  5. PREDNISONE [Concomitant]
     Indication: ARTHRITIS
     Route: 065
  6. ASPIRIN [Concomitant]
     Route: 065
  7. NASONEX [Concomitant]
     Indication: SINUS CONGESTION
     Route: 065

REACTIONS (6)
  - ANGINA PECTORIS [None]
  - ANOXIC ENCEPHALOPATHY [None]
  - BACK PAIN [None]
  - CARDIAC ARREST [None]
  - MYOCARDIAL INFARCTION [None]
  - VENTRICULAR FIBRILLATION [None]
